FAERS Safety Report 20969016 (Version 2)
Quarter: 2022Q3

REPORT INFORMATION
  Report Type: Spontaneous
  Country: US (occurrence: US)
  Receive Date: 20220616
  Receipt Date: 20220818
  Transmission Date: 20221026
  Serious: Yes (Other)
  Sender: FDA-Public Use
  Company Number: US-PFIZER INC-202200840045

PATIENT
  Age: 57 Year
  Sex: Male
  Weight: 74.84 kg

DRUGS (3)
  1. PAXLOVID [Suspect]
     Active Substance: NIRMATRELVIR\RITONAVIR
     Indication: COVID-19 treatment
     Dosage: UNK, (300 BY 100MG SO TAKES THREE TABLETS IN THE MORNING AND EVENING )
     Route: 048
     Dates: start: 20220613
  2. CRESTOR [Concomitant]
     Active Substance: ROSUVASTATIN CALCIUM
     Indication: Blood cholesterol abnormal
     Dosage: UNK
  3. LISINOPRIL [Concomitant]
     Active Substance: LISINOPRIL
     Indication: Hypertension
     Dosage: UNK

REACTIONS (5)
  - Ageusia [Unknown]
  - Anosmia [Unknown]
  - Dysgeusia [Not Recovered/Not Resolved]
  - Throat irritation [Unknown]
  - Cough [Unknown]

NARRATIVE: CASE EVENT DATE: 20220613
